FAERS Safety Report 11501579 (Version 5)
Quarter: 2016Q1

REPORT INFORMATION
  Report Type: Report from Study
  Country: US (occurrence: US)
  Receive Date: 20150914
  Receipt Date: 20160331
  Transmission Date: 20160525
  Serious: No
  Sender: FDA-Public Use
  Company Number: PHEH2015US017737

PATIENT
  Sex: Female
  Weight: 107.94 kg

DRUGS (1)
  1. GILENYA [Suspect]
     Active Substance: FINGOLIMOD HYDROCHLORIDE
     Indication: MULTIPLE SCLEROSIS
     Dosage: 0.5 MG, QD
     Route: 048
     Dates: start: 20110829

REACTIONS (6)
  - Memory impairment [Unknown]
  - Paraesthesia [Recovered/Resolved]
  - Confusional state [Unknown]
  - Paranoia [Unknown]
  - Influenza [Unknown]
  - Malaise [Unknown]
